FAERS Safety Report 26000682 (Version 1)
Quarter: 2025Q4

REPORT INFORMATION
  Report Type: Spontaneous
  Country: EU (occurrence: EU)
  Receive Date: 20251105
  Receipt Date: 20251105
  Transmission Date: 20260119
  Serious: Yes (Hospitalization)
  Sender: MYLAN
  Company Number: None

PATIENT
  Age: 74 Year
  Sex: Female
  Weight: 84 kg

DRUGS (12)
  1. DOXYCYCLINE [Interacting]
     Active Substance: DOXYCYCLINE
     Indication: Endocarditis
     Dosage: 200 MILLIGRAM, QD
     Dates: start: 20250320
  2. DOXYCYCLINE [Interacting]
     Active Substance: DOXYCYCLINE
     Dosage: 200 MILLIGRAM, QD
     Route: 048
     Dates: start: 20250320
  3. DOXYCYCLINE [Interacting]
     Active Substance: DOXYCYCLINE
     Dosage: 200 MILLIGRAM, QD
     Route: 048
     Dates: start: 20250320
  4. DOXYCYCLINE [Interacting]
     Active Substance: DOXYCYCLINE
     Dosage: 200 MILLIGRAM, QD
     Dates: start: 20250320
  5. CEFAZOLIN [Interacting]
     Active Substance: CEFAZOLIN
     Indication: Endocarditis
     Dosage: 8 GRAM, QD
     Dates: start: 20250320
  6. CEFAZOLIN [Interacting]
     Active Substance: CEFAZOLIN
     Dosage: 8 GRAM, QD
     Route: 042
     Dates: start: 20250320
  7. CEFAZOLIN [Interacting]
     Active Substance: CEFAZOLIN
     Dosage: 8 GRAM, QD
     Route: 042
     Dates: start: 20250320
  8. CEFAZOLIN [Interacting]
     Active Substance: CEFAZOLIN
     Dosage: 8 GRAM, QD
     Dates: start: 20250320
  9. WARFARIN SODIUM [Interacting]
     Active Substance: WARFARIN SODIUM
     Indication: Atrial fibrillation
     Dosage: QD (3 MG THEN 2 MG/D )
     Dates: start: 20250324, end: 20250413
  10. WARFARIN SODIUM [Interacting]
     Active Substance: WARFARIN SODIUM
     Dosage: QD (3 MG THEN 2 MG/D )
     Route: 048
     Dates: start: 20250324, end: 20250413
  11. WARFARIN SODIUM [Interacting]
     Active Substance: WARFARIN SODIUM
     Dosage: QD (3 MG THEN 2 MG/D )
     Route: 048
     Dates: start: 20250324, end: 20250413
  12. WARFARIN SODIUM [Interacting]
     Active Substance: WARFARIN SODIUM
     Dosage: QD (3 MG THEN 2 MG/D )
     Dates: start: 20250324, end: 20250413

REACTIONS (2)
  - International normalised ratio increased [Recovered/Resolved]
  - Overdose [Recovered/Resolved]

NARRATIVE: CASE EVENT DATE: 20250412
